FAERS Safety Report 23579064 (Version 1)
Quarter: 2024Q1

REPORT INFORMATION
  Report Type: Spontaneous
  Country: US (occurrence: None)
  Receive Date: 20240229
  Receipt Date: 20240229
  Transmission Date: 20240410
  Serious: No
  Sender: FDA-Public Use
  Company Number: 2024A050070

PATIENT
  Age: 75 Year

DRUGS (1)
  1. PRILOSEC OTC [Suspect]
     Active Substance: OMEPRAZOLE MAGNESIUM
     Indication: Gastrooesophageal reflux disease
     Dosage: TAKING IT TWICE A DAY
     Route: 048

REACTIONS (7)
  - Vitamin B complex deficiency [Unknown]
  - Bone density decreased [Unknown]
  - Fatigue [Unknown]
  - Prescribed overdose [Unknown]
  - Off label use [Unknown]
  - Incorrect product administration duration [Unknown]
  - Drug effective for unapproved indication [Unknown]
